FAERS Safety Report 5054995-6 (Version None)
Quarter: 2006Q3

REPORT INFORMATION
  Report Type: 
  Country: None (occurrence: None)
  Receive Date: 20060719
  Receipt Date: 20060710
  Transmission Date: 20061208
  Serious: Yes (Death, Hospitalization)
  Sender: FDA-Public Use
  Company Number: FR-GLAXOSMITHKLINE-B0430379A

PATIENT
  Age: 86 Year
  Sex: Female

DRUGS (4)
  1. AUGMENTIN '125' [Suspect]
     Route: 048
     Dates: start: 20060306
  2. LASILIX [Suspect]
     Route: 048
  3. MOTILIUM [Suspect]
     Route: 048
  4. CALCIPARINE [Suspect]
     Indication: PULMONARY EMBOLISM
     Route: 058
     Dates: end: 20060308

REACTIONS (3)
  - DEATH [None]
  - MELAENA [None]
  - THROMBOCYTOPENIA [None]
